FAERS Safety Report 5655089-9 (Version None)
Quarter: 2008Q1

REPORT INFORMATION
  Report Type: 
  Country: None (occurrence: None)
  Receive Date: 20080307
  Receipt Date: 20071130
  Transmission Date: 20080703
  Serious: No
  Sender: FDA-Public Use
  Company Number: A0696805A

PATIENT
  Sex: Male

DRUGS (8)
  1. REQUIP [Suspect]
     Indication: PROSTATE CANCER
     Dosage: .25MG THREE TIMES PER DAY
     Route: 048
  2. CASODEX [Concomitant]
  3. MULTI-VITAMIN [Concomitant]
  4. AVODART [Concomitant]
  5. ESTRADIOL PATCH [Concomitant]
  6. FOSAMAX [Concomitant]
  7. ASCORBIC ACID [Concomitant]
  8. VITAMIN D3 [Concomitant]

REACTIONS (4)
  - DRUG ADMINISTRATION ERROR [None]
  - LETHARGY [None]
  - MALAISE [None]
  - SOMNOLENCE [None]
